FAERS Safety Report 5376044-2 (Version None)
Quarter: 2007Q3

REPORT INFORMATION
  Report Type: 
  Country: None (occurrence: None)
  Receive Date: 20070702
  Receipt Date: 20070626
  Transmission Date: 20080115
  Serious: Yes (Other)
  Sender: FDA-Public Use
  Company Number: JP-AVENTIS-200711173JP

PATIENT
  Age: 17 Year
  Sex: Male

DRUGS (5)
  1. ALLEGRA [Suspect]
     Route: 048
     Dates: start: 20070428, end: 20070429
  2. ONON [Suspect]
     Dates: start: 20070428, end: 20070429
  3. LOXONIN                            /00890701/ [Suspect]
     Dates: start: 20070428, end: 20070429
  4. GATIFLOXACIN [Suspect]
     Dates: start: 20070428, end: 20070429
  5. TAMIFLU [Concomitant]

REACTIONS (1)
  - RHABDOMYOLYSIS [None]
